FAERS Safety Report 5117952-7 (Version None)
Quarter: 2006Q3

REPORT INFORMATION
  Report Type: 
  Country: None (occurrence: None)
  Receive Date: 20060925
  Receipt Date: 20060918
  Transmission Date: 20061208
  Serious: Yes (Hospitalization)
  Sender: FDA-Public Use
  Company Number: 2005-11-0314

PATIENT
  Age: 2 Year
  Sex: Female
  Weight: 8.9 kg

DRUGS (1)
  1. CELESTONE [Suspect]
     Indication: PNEUMONIA
     Dosage: PO
     Route: 048
     Dates: start: 20050826, end: 20050828

REACTIONS (9)
  - BULLOUS LUNG DISEASE [None]
  - CONDITION AGGRAVATED [None]
  - GENERAL PHYSICAL CONDITION ABNORMAL [None]
  - INFECTION [None]
  - LUNG DISORDER [None]
  - NEUTROPENIA [None]
  - OXYGEN SATURATION DECREASED [None]
  - PLEURAL EFFUSION [None]
  - PNEUMOTHORAX [None]
